FAERS Safety Report 6431561-9 (Version None)
Quarter: 2009Q4

REPORT INFORMATION
  Report Type: 
  Country: None (occurrence: None)
  Receive Date: 20091103
  Receipt Date: 20091022
  Transmission Date: 20100525
  Serious: Yes (Death, Hospitalization, Other)
  Sender: FDA-Public Use
  Company Number: 2009-04414

PATIENT
  Age: 41 Year
  Sex: Female

DRUGS (5)
  1. VELCADE [Suspect]
     Indication: MULTIPLE MYELOMA
  2. DEXAMETHASONE TAB [Suspect]
     Indication: MULTIPLE MYELOMA
  3. REVLIMID [Suspect]
     Indication: MULTIPLE MYELOMA
     Dosage: 25 MG, ORAL
     Route: 048
     Dates: start: 20090212, end: 20090701
  4. G-CSF (GRANULOCYTE COLONY STIMULATING FACTOR) [Concomitant]
  5. PRESSORS (INDAPAMIDE) [Concomitant]

REACTIONS (10)
  - ACUTE RESPIRATORY DISTRESS SYNDROME [None]
  - BLOOD CULTURE POSITIVE [None]
  - GENERAL PHYSICAL HEALTH DETERIORATION [None]
  - HEPATIC FUNCTION ABNORMAL [None]
  - LABORATORY TEST ABNORMAL [None]
  - LIVER FUNCTION TEST ABNORMAL [None]
  - PNEUMONIA VIRAL [None]
  - RESPIRATORY FAILURE [None]
  - STAPHYLOCOCCAL INFECTION [None]
  - TACHYCARDIA [None]
